FAERS Safety Report 6294924-0 (Version None)
Quarter: 2009Q3

REPORT INFORMATION
  Report Type: 
  Country: None (occurrence: None)
  Receive Date: 20090730
  Receipt Date: 20090715
  Transmission Date: 20100115
  Serious: Yes (Hospitalization)
  Sender: FDA-Public Use
  Company Number: 6053022

PATIENT
  Age: 81 Year
  Sex: Female

DRUGS (9)
  1. LEVOTHYROXINE SODIUM [Suspect]
     Indication: HYPOTHYROIDISM
     Dosage: 87.5 MCG (87.5 MCG, 1 IN 1 D) ORAL
     Route: 048
  2. ASPIRIN [Suspect]
     Indication: THROMBOSIS PROPHYLAXIS
     Dosage: 1 DOSAGE FORMS (1 DOSAGE FORMS, 1 IN 1 D) ORAL
     Route: 048
     Dates: start: 20090118
  3. PLAVIX [Suspect]
     Indication: THROMBOSIS PROPHYLAXIS
     Dosage: 1 DOSAGE FORMS (1 DOSAGE FORMS, 1 IN 1 D) ORAL
     Route: 048
     Dates: start: 20090118
  4. ACEBUTOLOL [Suspect]
     Indication: DRUG USE FOR UNKNOWN INDICATION
     Dosage: 1 DOSAGE FORMS (0.5 DOSAGE FORMS, IN THE MORNING AND IN THE EVENING) ORAL
     Route: 048
     Dates: start: 20090118
  5. COVERSYL (2 MG, TABLET) (PERINDOPRIL) [Suspect]
     Indication: DRUG USE FOR UNKNOWN INDICATION
     Dosage: 1 DOSAGE FORMS (1 DOSAGE FORMS, 1 IN 1 D) ORAL
     Route: 048
     Dates: start: 20090118
  6. CACIT VITAMINE D3 (1000 MG, EFFERVESCENT GRANULES) (COLECALCIFEROL, CA [Suspect]
     Indication: VITAMIN D DEFICIENCY
     Dosage: ORAL
     Route: 048
     Dates: start: 20090201
  7. ATARAX [Suspect]
     Indication: ANXIETY
     Dosage: 1 DOSAGE FORMS (1 DOSAGE FORMS, 1 IN 1 D) ORAL
     Route: 048
     Dates: start: 20090201
  8. NEXIUM [Concomitant]
  9. ATORVASTATIN CALCIUM [Concomitant]

REACTIONS (3)
  - ECZEMA [None]
  - TOXIC SKIN ERUPTION [None]
  - VITAMIN D DEFICIENCY [None]
